FAERS Safety Report 6081314-9 (Version None)
Quarter: 2009Q1

REPORT INFORMATION
  Report Type: 
  Country: None (occurrence: None)
  Receive Date: 20090218
  Receipt Date: 20090212
  Transmission Date: 20090719
  Serious: Yes (Other)
  Sender: FDA-Public Use
  Company Number: US-RANBAXY-2009US-21792

PATIENT

DRUGS (4)
  1. VERAPAMIL [Suspect]
     Indication: LEFT VENTRICULAR HYPERTROPHY
     Dosage: 80 MG, TID
     Route: 048
     Dates: start: 20030101
  2. CLOMIPRAMINE HCL [Concomitant]
     Indication: DEPRESSION
     Dosage: 10 MG, QD
     Route: 048
  3. CLONAZEPAM [Concomitant]
     Indication: INSOMNIA
     Dosage: 2.000000 MG, QD
     Route: 048
  4. IBUPROFEN [Concomitant]
     Indication: PAIN IN EXTREMITY
     Dosage: 400.000000 MG, QD
     Route: 065

REACTIONS (4)
  - DIZZINESS [None]
  - DYSPNOEA [None]
  - HYPOTENSION [None]
  - PAIN IN EXTREMITY [None]
